FAERS Safety Report 4738692-X (Version None)
Quarter: 2005Q3

REPORT INFORMATION
  Report Type: 
  Country: None (occurrence: None)
  Receive Date: 20050809
  Receipt Date: 20050809
  Transmission Date: 20060218
  Serious: Yes (Hospitalization)
  Sender: FDA-Public Use
  Company Number: None

PATIENT
  Sex: Male

DRUGS (1)
  1. METOPROLOL XL [Suspect]
     Indication: HYPERTENSION
     Dosage: 25 MG QD

REACTIONS (1)
  - HYPERKALAEMIA [None]
